FAERS Safety Report 9185735 (Version 1)
Quarter: 2013Q1

REPORT INFORMATION
  Report Type: Spontaneous
  Country: BR (occurrence: BR)
  Receive Date: 20130325
  Receipt Date: 20130325
  Transmission Date: 20140127
  Serious: Yes (Other)
  Sender: FDA-Public Use
  Company Number: BR-AMGEN-BRASP2013019805

PATIENT
  Age: 58 Year
  Sex: Male
  Weight: 92 kg

DRUGS (2)
  1. ENBREL [Suspect]
     Indication: PSORIASIS
     Dosage: 50 MG, ONCE WEEKLY
     Route: 058
     Dates: start: 2007, end: 2009
  2. NIFEDIPINE [Concomitant]
     Indication: BLOOD PRESSURE
     Dosage: UNK, UNK, BID

REACTIONS (2)
  - Diabetes mellitus [Unknown]
  - Psoriasis [Unknown]
